FAERS Safety Report 21619791 (Version 2)
Quarter: 2022Q4

REPORT INFORMATION
  Report Type: Spontaneous
  Country: PL (occurrence: PL)
  Receive Date: 20221121
  Receipt Date: 20221129
  Transmission Date: 20230113
  Serious: Yes (Death, Other)
  Sender: FDA-Public Use
  Company Number: PL-TOLMAR, INC.-22PL037445

PATIENT
  Age: 76 Year
  Sex: Male

DRUGS (4)
  1. UNSPECIFIED INGREDIENT [Suspect]
     Active Substance: UNSPECIFIED INGREDIENT
     Indication: Adenocarcinoma
     Dosage: UNK, Q 3 MONTH
     Dates: start: 202108
  2. ZOLADEX [Suspect]
     Active Substance: GOSERELIN ACETATE
     Indication: Adenocarcinoma
     Dosage: UNK, Q 3 MONTH
     Dates: start: 202108
  3. FLUTAMIDE [Suspect]
     Active Substance: FLUTAMIDE
     Indication: Adenocarcinoma
     Dosage: UNK
  4. UNSPECIFIED INGREDIENT [Concomitant]
     Active Substance: UNSPECIFIED INGREDIENT
     Indication: Product used for unknown indication

REACTIONS (1)
  - Adenocarcinoma [Fatal]
